FAERS Safety Report 17543868 (Version 1)
Quarter: 2020Q1

REPORT INFORMATION
  Report Type: Report from Study
  Country: US (occurrence: US)
  Receive Date: 20200316
  Receipt Date: 20200316
  Transmission Date: 20200409
  Serious: Yes (Hospitalization, Other)
  Sender: FDA-Public Use
  Company Number: US-ROCHE-2549275

PATIENT
  Sex: Male
  Weight: 81.72 kg

DRUGS (3)
  1. NITROGLYCERIN. [Concomitant]
     Active Substance: NITROGLYCERIN
     Dosage: PRESCRIBED AFTER OCREVUS ;ONGOING: YES
     Route: 065
  2. OCREVUS [Suspect]
     Active Substance: OCRELIZUMAB
     Indication: RELAPSING-REMITTING MULTIPLE SCLEROSIS
     Dosage: DATE OF TREATMENT: 04/FEB/2019, 05/AUG/2019, 03/FEB/2020.?ONGOING: YES
     Route: 042
     Dates: start: 20180803
  3. KEPPRA [Concomitant]
     Active Substance: LEVETIRACETAM
     Indication: SEIZURE
     Dosage: STARTED AFTER OCREVUS ;ONGOING: YES
     Route: 065

REACTIONS (11)
  - Diarrhoea [Recovered/Resolved]
  - Relapsing multiple sclerosis [Recovered/Resolved]
  - Venous occlusion [Recovered/Resolved]
  - Thinking abnormal [Not Recovered/Not Resolved]
  - Fall [Unknown]
  - Hypotension [Recovered/Resolved]
  - Magnetic resonance imaging brain abnormal [Not Recovered/Not Resolved]
  - Testis cancer [Recovered/Resolved]
  - Dizziness [Recovered/Resolved]
  - Head injury [Recovered/Resolved]
  - Walking aid user [Not Recovered/Not Resolved]

NARRATIVE: CASE EVENT DATE: 2019
